FAERS Safety Report 6959388-X (Version None)
Quarter: 2010Q3

REPORT INFORMATION
  Report Type: 
  Country: None (occurrence: None)
  Receive Date: 20100831
  Receipt Date: 20100831
  Transmission Date: 20110219
  Serious: Yes (Hospitalization)
  Sender: FDA-Public Use
  Company Number: None

PATIENT
  Age: 66 Year
  Sex: Male
  Weight: 45.3597 kg

DRUGS (2)
  1. GABAPENTIN [Suspect]
     Indication: DIARRHOEA
     Dosage: 600 MG TID PO
     Route: 048
     Dates: start: 20100713, end: 20100803
  2. GABAPENTIN [Suspect]
     Dosage: 400 MG TID PO
     Route: 048
     Dates: start: 20100713, end: 20100803

REACTIONS (3)
  - ADVERSE DRUG REACTION [None]
  - DIARRHOEA [None]
  - DIZZINESS [None]
